FAERS Safety Report 12173911 (Version 2)
Quarter: 2016Q3

REPORT INFORMATION
  Report Type: Report from Study
  Country: FR (occurrence: FR)
  Receive Date: 20160314
  Receipt Date: 20160912
  Transmission Date: 20161109
  Serious: Yes (Other)
  Sender: FDA-Public Use
  Company Number: FR-AMGEN-FRACT2016028261

PATIENT
  Sex: Male

DRUGS (2)
  1. PREFILLED SYRINGE [Suspect]
     Active Substance: UNSPECIFIED INGREDIENT
     Indication: EXPOSURE VIA FATHER
     Dosage: UNK
     Route: 064
  2. AMG 145 [Suspect]
     Active Substance: EVOLOCUMAB
     Indication: EXPOSURE VIA FATHER
     Dosage: 140 MG, Q2WK
     Route: 064

REACTIONS (3)
  - Exposure via father [Recovered/Resolved]
  - Foetal heart rate abnormal [Unknown]
  - Premature baby [Unknown]
